FAERS Safety Report 6152937-3 (Version None)
Quarter: 2009Q2

REPORT INFORMATION
  Report Type: 
  Country: None (occurrence: None)
  Receive Date: 20090413
  Receipt Date: 20090410
  Transmission Date: 20091009
  Serious: Yes (Hospitalization)
  Sender: FDA-Public Use
  Company Number: US-B.I. PHARMACEUTICALS,INC./RIDGEFIELD-2008-BP-18522BP

PATIENT
  Sex: Female
  Weight: 58.51 kg

DRUGS (16)
  1. COMBIVENT [Suspect]
     Indication: CHRONIC OBSTRUCTIVE PULMONARY DISEASE
     Route: 055
     Dates: end: 20080811
  2. COMBIVENT [Suspect]
     Indication: BRONCHITIS CHRONIC
  3. VOSPIRE ER [Concomitant]
     Dosage: 8MG
     Route: 048
  4. BENZONATATE [Concomitant]
     Indication: COUGH
     Route: 048
  5. SINGULAIR [Concomitant]
     Dosage: 10MG
     Route: 048
  6. ZYRTEC [Concomitant]
     Dosage: 10MG
     Route: 048
  7. DUONEB [Concomitant]
  8. TERBUTALINE SULFATE [Concomitant]
  9. SPIRIVA [Concomitant]
     Dosage: 18MCG
     Route: 055
     Dates: start: 20081001
  10. ALBUTEROL [Concomitant]
     Dates: start: 20081001
  11. ADVAIR HFA [Concomitant]
     Route: 055
  12. VENTOLIN [Concomitant]
     Route: 055
  13. HOME OXYGEN [Concomitant]
  14. BONIVA [Concomitant]
     Route: 048
  15. CYMBALTA [Concomitant]
     Dosage: 20MG
     Route: 048
  16. FLEXERIL [Concomitant]
     Indication: MUSCLE TIGHTNESS
     Route: 048

REACTIONS (2)
  - ALOPECIA [None]
  - BRONCHITIS [None]
